FAERS Safety Report 23516247 (Version 1)
Quarter: 2024Q1

REPORT INFORMATION
  Report Type: Spontaneous
  Country: CA (occurrence: CA)
  Receive Date: 20240213
  Receipt Date: 20240213
  Transmission Date: 20240409
  Serious: Yes (Other)
  Sender: FDA-Public Use
  Company Number: CA-SEBELA IRELAND LIMITED-2024SEB00011

PATIENT
  Age: 45 Year
  Sex: Male

DRUGS (8)
  1. AZATHIOPRINE [Suspect]
     Active Substance: AZATHIOPRINE
     Indication: Colitis ulcerative
     Dosage: UNK
     Dates: end: 202102
  2. VEDOLIZUMAB [Suspect]
     Active Substance: VEDOLIZUMAB
     Indication: Colitis ulcerative
     Dosage: 300 MG EVERY 8 WEEKS
     Dates: start: 2016, end: 2018
  3. VEDOLIZUMAB [Suspect]
     Active Substance: VEDOLIZUMAB
     Dosage: 300 MG EVERY 4 WEEKS
     Dates: start: 2018, end: 202005
  4. USTEKINUMAB [Suspect]
     Active Substance: USTEKINUMAB
     Indication: Colitis ulcerative
     Dosage: 90 MG EVERY 8 WEEKS
     Dates: start: 202005, end: 202009
  5. USTEKINUMAB [Suspect]
     Active Substance: USTEKINUMAB
     Dosage: 90 MG EVERY 4 WEEKS
     Dates: start: 202009, end: 202101
  6. INFLIXIMAB [Suspect]
     Active Substance: INFLIXIMAB
     Indication: Colitis ulcerative
     Dosage: INDUCTION
     Dates: start: 202101
  7. INFLIXIMAB [Suspect]
     Active Substance: INFLIXIMAB
     Dosage: 5 MG/KG EVERY 8 WEEKS (MAINTENANCE)
     Dates: start: 2021
  8. MESALAMINE [Concomitant]
     Active Substance: MESALAMINE
     Indication: Colitis ulcerative
     Dosage: UNK
     Dates: start: 2005

REACTIONS (1)
  - Malacoplakia gastrointestinal [Recovered/Resolved]

NARRATIVE: CASE EVENT DATE: 20210701
